FAERS Safety Report 9760292 (Version 8)
Quarter: 2014Q2

REPORT INFORMATION
  Report Type: Spontaneous
  Country: US (occurrence: US)
  Receive Date: 20131216
  Receipt Date: 20140422
  Transmission Date: 20141212
  Serious: Yes (Other)
  Sender: FDA-Public Use
  Company Number: US-GLAXOSMITHKLINE-A1053221A

PATIENT
  Age: 63 Year
  Sex: Female

DRUGS (6)
  1. LAMICTAL [Suspect]
     Indication: PRODUCT USED FOR UNKNOWN INDICATION
     Dosage: 150MG PER DAY
     Route: 048
     Dates: start: 20090429
  2. CLONIDINE [Suspect]
     Indication: TREMOR
     Route: 065
     Dates: end: 20131205
  3. DIAZEPAM [Suspect]
     Indication: PRODUCT USED FOR UNKNOWN INDICATION
     Route: 065
  4. AMPICILLIN [Concomitant]
  5. UNSPECIFIED MEDICATION [Concomitant]
  6. ABILIFY [Concomitant]

REACTIONS (24)
  - Urinary tract infection [Unknown]
  - Nervousness [Unknown]
  - Dizziness [Unknown]
  - Dry mouth [Unknown]
  - Tremor [Unknown]
  - Dysphagia [Unknown]
  - Nausea [Unknown]
  - Panic reaction [Unknown]
  - Constipation [Unknown]
  - Malaise [Unknown]
  - Confusional state [Unknown]
  - Abdominal pain upper [Unknown]
  - Diarrhoea [Unknown]
  - Bruxism [Unknown]
  - Muscle atrophy [Unknown]
  - Nervousness [Unknown]
  - Toothache [Unknown]
  - Vasodilatation [Unknown]
  - Stress [Unknown]
  - Nasopharyngitis [Unknown]
  - Influenza [Unknown]
  - Drug administration error [Unknown]
  - Memory impairment [Unknown]
  - Allergic sinusitis [Unknown]
